FAERS Safety Report 10612210 (Version 4)
Quarter: 2014Q4

REPORT INFORMATION
  Report Type: Spontaneous
  Country: JP (occurrence: JP)
  Receive Date: 20141127
  Receipt Date: 20141224
  Transmission Date: 20150529
  Serious: Yes (Other)
  Sender: FDA-Public Use
  Company Number: JP-ROCHE-1490562

PATIENT
  Age: 66 Year
  Sex: Female
  Weight: 74 kg

DRUGS (3)
  1. PARIET [Concomitant]
     Active Substance: RABEPRAZOLE SODIUM
     Route: 048
     Dates: start: 20120705
  2. BONVIVA [Suspect]
     Active Substance: IBANDRONATE SODIUM
     Indication: OSTEOPOROSIS
     Route: 042
     Dates: start: 20141027, end: 20141027
  3. NORVASC [Concomitant]
     Active Substance: AMLODIPINE BESYLATE
     Route: 048
     Dates: start: 20100525

REACTIONS (4)
  - Back pain [Recovering/Resolving]
  - Headache [Recovering/Resolving]
  - Neck pain [Recovering/Resolving]
  - Head discomfort [Recovering/Resolving]

NARRATIVE: CASE EVENT DATE: 20141028
